FAERS Safety Report 18387148 (Version 3)
Quarter: 2024Q2

REPORT INFORMATION
  Report Type: Report from Study
  Country: ES (occurrence: ES)
  Receive Date: 20201015
  Receipt Date: 20240604
  Transmission Date: 20240716
  Serious: Yes (Life-Threatening, Hospitalization, Other)
  Sender: FDA-Public Use
  Company Number: ES-KRKA-ES2020K15125LIT

PATIENT
  Age: 64 Year
  Sex: Female
  Weight: 59 kg

DRUGS (19)
  1. CALCIUM CARBONATE\CALCIUM CITRATE\CALCIUM PHOSPHATE\CHOLECALCIFEROL\VI [Suspect]
     Active Substance: CALCIUM CARBONATE\CALCIUM CITRATE\CALCIUM PHOSPHATE\CHOLECALCIFEROL\VITAMIN D
     Dosage: UNK
     Route: 065
  2. MIRTAZAPINE [Suspect]
     Active Substance: MIRTAZAPINE
     Indication: Depression
     Dosage: 15 MILLIGRAM, QD
     Route: 048
  3. PANTOPRAZOLE [Suspect]
     Active Substance: PANTOPRAZOLE
     Indication: Gastritis
     Dosage: 80 MILLIGRAM, QD
     Route: 048
  4. NALOXONE [Suspect]
     Active Substance: NALOXONE
     Dosage: UNK
     Route: 065
  5. ENOXAPARIN [Suspect]
     Active Substance: ENOXAPARIN
     Indication: Pulmonary embolism
     Dosage: UNK
     Route: 058
     Dates: start: 201501
  6. ALECTINIB [Suspect]
     Active Substance: ALECTINIB
     Indication: Non-small cell lung cancer
     Dosage: 1200 MILLIGRAM, QD
     Route: 048
     Dates: start: 20150619, end: 20150703
  7. ALECTINIB [Suspect]
     Active Substance: ALECTINIB
     Dosage: 900 MILLIGRAM, QD
     Route: 048
     Dates: start: 20150731, end: 20150821
  8. ALECTINIB [Suspect]
     Active Substance: ALECTINIB
     Dosage: 600 MILLIGRAM, QD
     Route: 048
  9. ZOPICLONE [Suspect]
     Active Substance: ZOPICLONE
     Indication: Insomnia
     Dosage: 7.5 MILLIGRAM, QD
     Route: 048
  10. DEXAMETHASONE [Suspect]
     Active Substance: DEXAMETHASONE
     Indication: Metastases to central nervous system
     Dosage: 4 MILLIGRAM, QD
     Route: 048
  11. OXYCODONE [Suspect]
     Active Substance: OXYCODONE\OXYCODONE HYDROCHLORIDE
     Dosage: UNK
     Route: 065
  12. CALCIUM\CHOLECALCIFEROL [Suspect]
     Active Substance: CALCIUM\CHOLECALCIFEROL
     Dosage: 2 DOSAGE FORM, QD
     Route: 048
  13. ENOXAPARIN SODIUM [Suspect]
     Active Substance: ENOXAPARIN SODIUM
     Indication: Pulmonary embolism
     Dosage: 1.2 MILLILITER, QD
     Route: 058
     Dates: start: 20150101, end: 20150703
  14. NADROPARIN CALCIUM [Suspect]
     Active Substance: NADROPARIN CALCIUM
     Indication: Pulmonary embolism
     Dosage: 0.6 MILLIGRAM, QD
     Route: 048
  15. NALOXONE HYDROCHLORIDE\OXYCODONE HYDROCHLORIDE [Suspect]
     Active Substance: NALOXONE HYDROCHLORIDE\OXYCODONE HYDROCHLORIDE
     Indication: Pain
     Dosage: 2 DOSAGE FORM, QD
     Route: 048
  16. TOREMIFENE [Suspect]
     Active Substance: TOREMIFENE
     Indication: Oedema
     Dosage: 5 MILLIGRAM, QD
     Route: 048
  17. TORSEMIDE [Suspect]
     Active Substance: TORSEMIDE
     Indication: Oedema
     Dosage: 5 MILLIGRAM, QD
     Route: 048
  18. UNSPECIFIED INGREDIENT [Concomitant]
     Active Substance: UNSPECIFIED INGREDIENT
     Dosage: UNK
  19. NUTRIFLEX [AMINO ACIDS NOS;CARBOHYDRATES NOS;ELECTROLYTES NOS] [Concomitant]
     Indication: Cachexia
     Dosage: 1875 MILLIGRAM, QD
     Route: 042
     Dates: start: 20150907, end: 20150924

REACTIONS (21)
  - Decreased appetite [Unknown]
  - Transaminases increased [Recovered/Resolved]
  - Gastritis [Recovered/Resolved]
  - Nausea [Unknown]
  - Pelvic pain [Unknown]
  - Large intestine perforation [Recovered/Resolved]
  - Retroperitoneal haemorrhage [Recovered/Resolved]
  - Sepsis [Recovering/Resolving]
  - Pelvic haematoma [Recovered/Resolved]
  - Pyelonephritis [Recovered/Resolved]
  - Pyrexia [Recovering/Resolving]
  - Diverticulitis [Recovered/Resolved with Sequelae]
  - Retroperitoneal haematoma [Recovered/Resolved]
  - Rhabdomyolysis [Recovered/Resolved with Sequelae]
  - Arthralgia [Not Recovered/Not Resolved]
  - Peritonitis [Recovered/Resolved]
  - General physical health deterioration [Unknown]
  - Blood creatine phosphokinase increased [Recovered/Resolved]
  - General physical health deterioration [Unknown]
  - Metastases to central nervous system [Unknown]
  - Cachexia [Unknown]

NARRATIVE: CASE EVENT DATE: 20150630
